FAERS Safety Report 15371238 (Version 1)
Quarter: 2018Q3

REPORT INFORMATION
  Report Type: Spontaneous
  Country: US (occurrence: US)
  Receive Date: 20180905
  Receipt Date: 20180905
  Transmission Date: 20181010
  Serious: Yes (Other)
  Sender: FDA-Public Use
  Company Number: None

PATIENT
  Age: 40 Year
  Sex: Male
  Weight: 59.42 kg

DRUGS (6)
  1. GEMFIBROZIL. [Suspect]
     Active Substance: GEMFIBROZIL
     Indication: HYPERTRIGLYCERIDAEMIA
     Dosage: OTHER ROUTE:GASTROSTOMY TUBE?
  2. LEVETIRACETAM 1250MG BID [Concomitant]
  3. ESOMEPRAZOLE 40MG BID [Concomitant]
  4. ZOLEDRONIC ACID 5MG IV YEARLY [Concomitant]
  5. PHENOBARBITAL100MG DAILY [Concomitant]
  6. POLYETHYLENE GLYCOL 17 GM DAILY [Concomitant]

REACTIONS (2)
  - Aspartate aminotransferase increased [None]
  - Alanine aminotransferase increased [None]

NARRATIVE: CASE EVENT DATE: 20180313
